FAERS Safety Report 11938036 (Version 1)
Quarter: 2016Q1

REPORT INFORMATION
  Report Type: Spontaneous
  Country: FR (occurrence: FR)
  Receive Date: 20160122
  Receipt Date: 20160122
  Transmission Date: 20160526
  Serious: Yes (Hospitalization, Other)
  Sender: FDA-Public Use
  Company Number: FR-BRISTOL-MYERS SQUIBB COMPANY-BMS-2016-001404

PATIENT
  Age: 81 Year
  Sex: Male

DRUGS (1)
  1. COUMADINE [Suspect]
     Active Substance: WARFARIN SODIUM
     Indication: ANTICOAGULANT THERAPY
     Dosage: 1 UNIT, QD
     Route: 048
     Dates: end: 20131016

REACTIONS (6)
  - Ulcer [Unknown]
  - Oesophagitis [Unknown]
  - Melaena [Recovered/Resolved]
  - Rectal haemorrhage [Recovered/Resolved]
  - Packed red blood cell transfusion [Unknown]
  - Haemoglobin decreased [Unknown]

NARRATIVE: CASE EVENT DATE: 20131016
